FAERS Safety Report 8065523-5 (Version None)
Quarter: 2011Q4

REPORT INFORMATION
  Report Type: 
  Country: None (occurrence: None)
  Receive Date: 20111221
  Receipt Date: 20110107
  Transmission Date: 20120403
  Serious: Yes (Hospitalization, Other)
  Sender: FDA-Public Use
  Company Number: PHHY2011US01343

PATIENT
  Age: 32 Year
  Sex: Male
  Weight: 70 kg

DRUGS (4)
  1. EXJADE [Suspect]
     Indication: SICKLE CELL ANAEMIA
     Dosage: 2000 MG, QD, ORAL
     Route: 048
     Dates: start: 20070209, end: 20070721
  2. FOLIC ACID [Concomitant]
  3. COMPAZINE [Concomitant]
  4. VICODIN [Concomitant]

REACTIONS (7)
  - CHEST PAIN [None]
  - SICKLE CELL ANAEMIA WITH CRISIS [None]
  - DYSPNOEA [None]
  - BACK PAIN [None]
  - ASTHENIA [None]
  - MALAISE [None]
  - FLANK PAIN [None]
